FAERS Safety Report 9280655 (Version 1)
Quarter: 2013Q2

REPORT INFORMATION
  Report Type: Spontaneous
  Country: US (occurrence: US)
  Receive Date: 20130509
  Receipt Date: 20130509
  Transmission Date: 20140414
  Serious: No
  Sender: FDA-Public Use
  Company Number: US-PFIZER INC-2013139616

PATIENT
  Sex: 0

DRUGS (1)
  1. RAPAMUNE [Suspect]
     Indication: MALIGNANT MESENCHYMOMA
     Dosage: 8 MG, 1X/DAY
     Route: 048
     Dates: start: 20130401

REACTIONS (1)
  - Drug ineffective for unapproved indication [Unknown]
